FAERS Safety Report 6435791-1 (Version None)
Quarter: 2009Q4

REPORT INFORMATION
  Report Type: 
  Country: None (occurrence: None)
  Receive Date: 20091111
  Receipt Date: 20091106
  Transmission Date: 20100525
  Serious: Yes (Life-Threatening, Hospitalization, Other)
  Sender: FDA-Public Use
  Company Number: FR-BRISTOL-MYERS SQUIBB COMPANY-13991211

PATIENT
  Age: 35 Year
  Sex: Male
  Weight: 62 kg

DRUGS (9)
  1. SUSTIVA [Suspect]
     Indication: HIV INFECTION
     Route: 048
     Dates: start: 20071030
  2. TRUVADA [Suspect]
     Indication: HIV INFECTION
     Dosage: 1 DOSAGE FORM = 1 TABLET
     Route: 048
     Dates: start: 20071030, end: 20080201
  3. BACTRIM [Suspect]
     Indication: PROPHYLAXIS
     Route: 048
     Dates: start: 20070928, end: 20071114
  4. RIFADIN [Suspect]
     Indication: TUBERCULOSIS
     Route: 048
     Dates: start: 20070928, end: 20080201
  5. RIMIFON [Suspect]
     Indication: TUBERCULOSIS
     Route: 048
     Dates: start: 20071006
  6. HEPARIN [Suspect]
     Indication: PROPHYLAXIS
     Route: 042
     Dates: start: 20070126
  7. MYAMBUTOL [Concomitant]
     Indication: TUBERCULOSIS
     Route: 048
     Dates: start: 20070928
  8. PIRILENE [Concomitant]
     Indication: TUBERCULOSIS
     Route: 048
     Dates: start: 20071030
  9. ATOVAQUONE [Concomitant]
     Indication: ANTIFUNGAL PROPHYLAXIS
     Dates: start: 20071206

REACTIONS (17)
  - BLOOD CULTURE POSITIVE [None]
  - COR PULMONALE ACUTE [None]
  - DRUG HYPERSENSITIVITY [None]
  - DYSPNOEA [None]
  - GENERAL PHYSICAL HEALTH DETERIORATION [None]
  - PHLEBITIS [None]
  - PNEUMOTHORAX [None]
  - PULMONARY EMBOLISM [None]
  - PYREXIA [None]
  - RASH [None]
  - RENAL FAILURE ACUTE [None]
  - RENAL TUBULAR NECROSIS [None]
  - SINUS TACHYCARDIA [None]
  - TACHYPNOEA [None]
  - THROMBOPHLEBITIS [None]
  - VENOUS PRESSURE JUGULAR INCREASED [None]
  - VIROLOGIC FAILURE [None]
